FAERS Safety Report 4361901-6 (Version None)
Quarter: 2004Q2

REPORT INFORMATION
  Report Type: 
  Country: None (occurrence: None)
  Receive Date: 20040521
  Receipt Date: 20030508
  Transmission Date: 20050107
  Serious: No
  Sender: FDA-Public Use
  Company Number: US-GLAXOSMITHKLINE-A0407701A

PATIENT
  Age: 71 Year
  Sex: Female

DRUGS (2)
  1. THORAZINE [Suspect]
     Dosage: 100MG PER DAY
     Route: 048
  2. TOFRANIL [Concomitant]

REACTIONS (2)
  - NASAL CONGESTION [None]
  - PHARMACEUTICAL PRODUCT COMPLAINT [None]
